FAERS Safety Report 4676734-0 (Version None)
Quarter: 2005Q2

REPORT INFORMATION
  Report Type: 
  Country: None (occurrence: None)
  Receive Date: 20050527
  Receipt Date: 20050520
  Transmission Date: 20051028
  Serious: Yes (Other)
  Sender: FDA-Public Use
  Company Number: ZA-ABBOTT-05P-143-0301150-00

PATIENT
  Sex: Male

DRUGS (7)
  1. EPILIM TABLETS [Suspect]
     Indication: CONVULSION
     Route: 048
     Dates: start: 19960101
  2. LAMOTRIGINE [Concomitant]
     Indication: DRUG USE FOR UNKNOWN INDICATION
     Route: 048
     Dates: start: 19980101, end: 20050301
  3. LAMOTRIGINE [Concomitant]
     Route: 048
     Dates: start: 20050301, end: 20050509
  4. LAMOTRIGINE [Concomitant]
     Route: 048
     Dates: start: 20050509
  5. CIPRALEX [Concomitant]
     Indication: DRUG USE FOR UNKNOWN INDICATION
     Route: 048
  6. TILAZEM CR [Concomitant]
     Indication: DRUG USE FOR UNKNOWN INDICATION
     Route: 048
     Dates: start: 19940101
  7. ALLOPURINOL [Concomitant]
     Indication: DRUG USE FOR UNKNOWN INDICATION
     Route: 048

REACTIONS (2)
  - CONVULSION [None]
  - STOOL ANALYSIS ABNORMAL [None]
